FAERS Safety Report 7814996-9 (Version None)
Quarter: 2011Q4

REPORT INFORMATION
  Report Type: 
  Country: None (occurrence: None)
  Receive Date: 20111014
  Receipt Date: 20111007
  Transmission Date: 20120403
  Serious: Yes (Hospitalization)
  Sender: FDA-Public Use
  Company Number: US-GLAXOSMITHKLINE-A0948680A

PATIENT
  Age: 55 Year
  Sex: Female
  Weight: 86.4 kg

DRUGS (1)
  1. FLOLAN [Suspect]
     Indication: PULMONARY HYPERTENSION
     Dosage: 34.36NGKM PER DAY
     Route: 042
     Dates: start: 20100818

REACTIONS (2)
  - FLUID RETENTION [None]
  - NEOPLASM MALIGNANT [None]
